FAERS Safety Report 6389623-0 (Version None)
Quarter: 2009Q4

REPORT INFORMATION
  Report Type: 
  Country: None (occurrence: None)
  Receive Date: 20091006
  Receipt Date: 20090928
  Transmission Date: 20100525
  Serious: Yes (Life-Threatening, Hospitalization)
  Sender: FDA-Public Use
  Company Number: PHHY2009GB40892

PATIENT
  Sex: Male

DRUGS (4)
  1. CLOZARIL [Suspect]
     Indication: SCHIZOPHRENIA
     Dosage: UNK
     Dates: start: 20090519
  2. CLOZARIL [Suspect]
     Dosage: 2.4 G
     Dates: start: 20090919
  3. CLOMIPRAMINE [Suspect]
     Dosage: UNK
     Dates: start: 20090919
  4. ATENOLOL [Suspect]
     Dosage: UNK
     Dates: start: 20090919

REACTIONS (1)
  - OVERDOSE [None]
